FAERS Safety Report 13285562 (Version 2)
Quarter: 2017Q1

REPORT INFORMATION
  Report Type: Spontaneous
  Country: ES (occurrence: ES)
  Receive Date: 20170302
  Receipt Date: 20170308
  Transmission Date: 20170428
  Serious: Yes (Other)
  Sender: FDA-Public Use
  Company Number: ES-TEVA-745162ISR

PATIENT
  Sex: Male

DRUGS (2)
  1. TEMOZOLOMIDE. [Concomitant]
     Active Substance: TEMOZOLOMIDE
     Dosage: 200 MG/M2/24 H (DAY 10 TO DAY 14)
     Route: 065
  2. CAPECITABINE. [Suspect]
     Active Substance: CAPECITABINE
     Indication: PRODUCT USED FOR UNKNOWN INDICATION
     Dosage: 750 MG/M2/12 H (DAY 1 TO DAY 14)
     Route: 065

REACTIONS (2)
  - Night blindness [Recovering/Resolving]
  - Chromatopsia [Recovering/Resolving]
